FAERS Safety Report 8612401-6 (Version None)
Quarter: 2012Q3

REPORT INFORMATION
  Report Type: 
  Country: None (occurrence: None)
  Receive Date: 20120809
  Receipt Date: 20120730
  Transmission Date: 20120928
  Serious: Yes (Other)
  Sender: FDA-Public Use
  Company Number: 1206-299

PATIENT
  Age: 72 Year
  Sex: Female

DRUGS (7)
  1. EYLEA [Suspect]
     Indication: AGE-RELATED MACULAR DEGENERATION
     Dosage: INTRAVITREAL
     Dates: start: 20120221, end: 20120522
  2. POTASSIUM (POTASSIUM) [Concomitant]
  3. AMLODIPINE [Concomitant]
  4. HYDROCHLOROTHIAZIDE (HCTZ) (HYDROCHLOROTHIAZIDE) [Concomitant]
  5. PLAVIX [Concomitant]
  6. DIOVAN [Concomitant]
  7. CRESTOR [Concomitant]

REACTIONS (2)
  - ENDOPHTHALMITIS [None]
  - UVEITIS [None]
